FAERS Safety Report 7801879-3 (Version None)
Quarter: 2011Q4

REPORT INFORMATION
  Report Type: 
  Country: None (occurrence: None)
  Receive Date: 20111007
  Receipt Date: 20111003
  Transmission Date: 20120403
  Serious: Yes (Other)
  Sender: FDA-Public Use
  Company Number: US-PFIZER INC-2011091361

PATIENT
  Sex: Male
  Weight: 95 kg

DRUGS (5)
  1. EFFEXOR [Suspect]
     Indication: DEPRESSION
     Dosage: 37.5 MG, 1X/DAY, 1 WEEK
     Route: 048
     Dates: start: 20110314
  2. VYVANSE [Concomitant]
     Indication: ATTENTION DEFICIT/HYPERACTIVITY DISORDER
     Dosage: 20 MG
     Dates: start: 20110314, end: 20110717
  3. EFFEXOR [Suspect]
     Indication: GENERALISED ANXIETY DISORDER
     Dosage: 75 MG, 1X/DAY, 2 WEEKS
     Route: 048
  4. EFFEXOR [Suspect]
     Dosage: 37.5 MG, 2 WEEKS AND STOPPED
     Route: 048
     Dates: end: 20110415
  5. SIMVASTATIN [Concomitant]
     Indication: BLOOD CHOLESTEROL INCREASED
     Dosage: 40 MG

REACTIONS (2)
  - HAEMATOSPERMIA [None]
  - LIBIDO DECREASED [None]
